FAERS Safety Report 11618432 (Version 2)
Quarter: 2015Q4

REPORT INFORMATION
  Report Type: Report from Study
  Country: CA (occurrence: CA)
  Receive Date: 20151012
  Receipt Date: 20151013
  Transmission Date: 20160304
  Serious: Yes (Hospitalization)
  Sender: FDA-Public Use
  Company Number: CA-ROCHE-ITM201412IM008053

PATIENT
  Age: 76 Year
  Sex: Male

DRUGS (22)
  1. SOFLAX (CANADA) [Concomitant]
  2. ELIQUIS [Concomitant]
     Active Substance: APIXABAN
  3. ESBRIET [Suspect]
     Active Substance: PIRFENIDONE
     Indication: IDIOPATHIC PULMONARY FIBROSIS
     Route: 048
     Dates: start: 20140922
  4. ESBRIET [Suspect]
     Active Substance: PIRFENIDONE
     Dosage: ON 13/DEC/2014, DOSE INTERRUPTED
     Route: 048
     Dates: start: 20141006
  5. ESBRIET [Suspect]
     Active Substance: PIRFENIDONE
     Route: 048
     Dates: start: 20150728, end: 20151007
  6. LEVODOPA [Concomitant]
     Active Substance: LEVODOPA
  7. DILTIAZEM [Concomitant]
     Active Substance: DILTIAZEM
  8. LASIX [Concomitant]
     Active Substance: FUROSEMIDE
  9. VENTOLIN [Concomitant]
     Active Substance: ALBUTEROL SULFATE
  10. VENLAFAXINE [Concomitant]
     Active Substance: VENLAFAXINE HYDROCHLORIDE
  11. NITRO-SPRAY [Concomitant]
     Active Substance: ISOSORBIDE DINITRATE
     Route: 065
  12. ATIVAN [Concomitant]
     Active Substance: LORAZEPAM
  13. NOVORAPID [Concomitant]
     Active Substance: INSULIN ASPART
  14. CIPRALEX [Concomitant]
     Active Substance: ESCITALOPRAM OXALATE
  15. SENNOKOTT [Concomitant]
  16. NITRO PATCH [Concomitant]
     Active Substance: NITROGLYCERIN
     Route: 065
  17. LANTUS [Concomitant]
     Active Substance: INSULIN GLARGINE
  18. LIPITOR [Concomitant]
     Active Substance: ATORVASTATIN CALCIUM
  19. ESBRIET [Suspect]
     Active Substance: PIRFENIDONE
     Route: 048
     Dates: start: 20140929
  20. QUININE [Concomitant]
     Active Substance: QUININE
  21. ZANTAC [Concomitant]
     Active Substance: RANITIDINE HYDROCHLORIDE
  22. ZENHALE [Concomitant]
     Active Substance: FORMOTEROL FUMARATE\MOMETASONE FUROATE

REACTIONS (3)
  - Diabetes mellitus [Unknown]
  - Dyspnoea [Unknown]
  - Dysphagia [Unknown]

NARRATIVE: CASE EVENT DATE: 20141212
